FAERS Safety Report 8017443-X (Version None)
Quarter: 2012Q1

REPORT INFORMATION
  Report Type: 
  Country: None (occurrence: None)
  Receive Date: 20120103
  Receipt Date: 20111222
  Transmission Date: 20120608
  Serious: Yes (Other)
  Sender: FDA-Public Use
  Company Number: US-BRISTOL-MYERS SQUIBB COMPANY-16314411

PATIENT
  Sex: Male

DRUGS (1)
  1. REYATAZ [Suspect]
     Indication: HIV INFECTION

REACTIONS (2)
  - HEPATIC CIRRHOSIS [None]
  - PLATELET COUNT DECREASED [None]
